FAERS Safety Report 5130933-2 (Version None)
Quarter: 2006Q3

REPORT INFORMATION
  Report Type: 
  Country: None (occurrence: None)
  Receive Date: 20060829
  Receipt Date: 20060717
  Transmission Date: 20061208
  Serious: No
  Sender: FDA-Public Use
  Company Number: PHEH2006US07494

PATIENT
  Age: 78 Year
  Sex: Female
  Weight: 53.2 kg

DRUGS (1)
  1. EXJADE [Suspect]
     Indication: MYELODYSPLASTIC SYNDROME
     Dosage: 20 MG/KG, QD, ORAL
     Route: 048
     Dates: start: 20060401

REACTIONS (1)
  - BLOOD BILIRUBIN INCREASED [None]
